FAERS Safety Report 6283609-2 (Version None)
Quarter: 2009Q3

REPORT INFORMATION
  Report Type: 
  Country: None (occurrence: None)
  Receive Date: 20090724
  Receipt Date: 20090430
  Transmission Date: 20100115
  Serious: No
  Sender: FDA-Public Use
  Company Number: US-ALEXION-A200900369

PATIENT

DRUGS (1)
  1. SOLIRIS [Suspect]

REACTIONS (1)
  - BACTERIAL INFECTION [None]
